FAERS Safety Report 10728783 (Version 4)
Quarter: 2015Q2

REPORT INFORMATION
  Report Type: Report from Study
  Country: PL (occurrence: PL)
  Receive Date: 20150122
  Receipt Date: 20150410
  Transmission Date: 20150821
  Serious: No
  Sender: FDA-Public Use
  Company Number: PL-ROCHE-1512055

PATIENT
  Age: 52 Year
  Sex: Female
  Weight: 65 kg

DRUGS (22)
  1. BISOCARD [Concomitant]
     Active Substance: BISOPROLOL
     Indication: HYPERTENSION
     Route: 048
     Dates: start: 20090630
  2. MOVALIS [Concomitant]
     Active Substance: MELOXICAM
     Dosage: SINGLE DOSE
     Route: 048
     Dates: start: 20140113, end: 20140113
  3. XORIMAX [Concomitant]
     Active Substance: CEFUROXIME AXETIL
     Indication: ACUTE TONSILLITIS
     Route: 048
     Dates: start: 20131102, end: 20131121
  4. VITAMIN B6 [Concomitant]
     Active Substance: PYRIDOXINE HYDROCHLORIDE
     Indication: PROPHYLAXIS
     Route: 048
     Dates: start: 2005
  5. BISOCARD [Concomitant]
     Active Substance: BISOPROLOL
     Indication: CORONARY ARTERY DISEASE
  6. ACID FOLIC [Concomitant]
     Indication: RHEUMATOID ARTHRITIS
     Route: 048
     Dates: start: 20130424
  7. MOVALIS [Concomitant]
     Active Substance: MELOXICAM
     Dosage: AS REQUIRED
     Route: 048
     Dates: start: 20140601
  8. DEVIKAP [Concomitant]
     Indication: PROPHYLAXIS
     Dosage: 4 DROPS
     Route: 048
     Dates: start: 20140729
  9. BACTROBAN [Concomitant]
     Active Substance: MUPIROCIN\MUPIROCIN CALCIUM
     Indication: BLISTER INFECTED
     Route: 062
     Dates: start: 20140120, end: 20140131
  10. TOCILIZUMAB [Suspect]
     Active Substance: TOCILIZUMAB
     Route: 042
     Dates: start: 20150210
  11. METYPRED [Concomitant]
     Active Substance: METHYLPREDNISOLONE
     Indication: RHEUMATOID ARTHRITIS
     Route: 048
     Dates: start: 20130424, end: 20130827
  12. METYPRED [Concomitant]
     Active Substance: METHYLPREDNISOLONE
     Route: 048
     Dates: start: 20130828
  13. VITAMIN B6 [Concomitant]
     Active Substance: PYRIDOXINE HYDROCHLORIDE
     Indication: HYPERTENSION
  14. MOVALIS [Concomitant]
     Active Substance: MELOXICAM
     Dosage: SINGLE DOSE
     Route: 048
     Dates: start: 20140506, end: 20140506
  15. SORBIFER DURULES [Concomitant]
     Active Substance: FERROUS SULFATE\FERROUS SULFATE, DRIED
     Route: 048
     Dates: start: 20150109
  16. TOCILIZUMAB [Suspect]
     Active Substance: TOCILIZUMAB
     Indication: RHEUMATOID ARTHRITIS
     Dosage: LAST DOSE PRIOR TO SAE ON 16/DEC/2014. DOSE 8 MG/KG AS PER PROTOCOL; INFUSION INTERRUPTED
     Route: 042
     Dates: start: 20130730
  17. ACARD [Concomitant]
     Active Substance: ASPIRIN
     Indication: CORONARY ARTERY DISEASE
     Route: 048
     Dates: start: 2005
  18. METHOTREXATE [Concomitant]
     Active Substance: METHOTREXATE
     Indication: RHEUMATOID ARTHRITIS
     Route: 048
     Dates: start: 20120618
  19. HELICID [Concomitant]
     Indication: PROPHYLAXIS
     Route: 048
     Dates: start: 2013
  20. METYPRED [Concomitant]
     Active Substance: METHYLPREDNISOLONE
     Route: 048
     Dates: start: 20130829
  21. MOVALIS [Concomitant]
     Active Substance: MELOXICAM
     Indication: RHEUMATOID ARTHRITIS
     Route: 048
     Dates: start: 20131001, end: 20131002
  22. AULIN [Concomitant]
     Active Substance: NIMESULIDE
     Indication: NASOPHARYNGITIS
     Route: 048
     Dates: start: 20131029, end: 20131031

REACTIONS (1)
  - Ventricular extrasystoles [Recovered/Resolved]

NARRATIVE: CASE EVENT DATE: 20141216
